FAERS Safety Report 14485523 (Version 1)
Quarter: 2018Q1

REPORT INFORMATION
  Report Type: Report from Study
  Country: AU (occurrence: AU)
  Receive Date: 20180205
  Receipt Date: 20180205
  Transmission Date: 20180509
  Serious: Yes (Death)
  Sender: FDA-Public Use
  Company Number: AU-TOLMAR, INC.-2018AU001186

PATIENT
  Sex: Male

DRUGS (2)
  1. FIRMAGON [Concomitant]
     Active Substance: DEGARELIX ACETATE
  2. ELIGARD [Suspect]
     Active Substance: LEUPROLIDE ACETATE
     Indication: PROSTATE CANCER
     Dosage: 45 MG, EVERY 6 MONTHS
     Route: 065
     Dates: start: 20170818

REACTIONS (1)
  - Death [Fatal]
